APPROVED DRUG PRODUCT: AMMONIA N 13
Active Ingredient: AMMONIA N-13
Strength: 15mCi-150mCi/4ML (3.75-37.5mCi/ML)
Dosage Form/Route: INJECTABLE;INTRAVENOUS
Application: A211698 | Product #001 | TE Code: AP
Applicant: UNIV ALABAMA AT BIRMINGHAM
Approved: Nov 3, 2022 | RLD: No | RS: No | Type: RX